FAERS Safety Report 10915312 (Version 1)
Quarter: 2015Q1

REPORT INFORMATION
  Report Type: Spontaneous
  Country: BE (occurrence: BE)
  Receive Date: 20150316
  Receipt Date: 20150316
  Transmission Date: 20150721
  Serious: No
  Sender: FDA-Public Use
  Company Number: BE-009507513-1503BEL004348

PATIENT
  Age: 19 Month
  Sex: Male

DRUGS (1)
  1. ELOCOM [Suspect]
     Active Substance: MOMETASONE FUROATE
     Indication: SKIN DISORDER
     Dosage: DID NOT TAKE A LOT SINCE THE TUBE HAD ALREADY BEEN USED
     Route: 048
     Dates: start: 20150309, end: 20150309

REACTIONS (4)
  - Wrong technique in drug usage process [Unknown]
  - No adverse event [Unknown]
  - Drug administered to patient of inappropriate age [Unknown]
  - Incorrect route of drug administration [Unknown]

NARRATIVE: CASE EVENT DATE: 20150309
